FAERS Safety Report 9494918 (Version 1)
Quarter: 2013Q3

REPORT INFORMATION
  Report Type: Spontaneous
  Country: US (occurrence: None)
  Receive Date: 20130830
  Receipt Date: 20130830
  Transmission Date: 20140515
  Serious: Yes (Hospitalization)
  Sender: FDA-Public Use
  Company Number: None

PATIENT
  Age: 52 Year
  Sex: Male
  Weight: 104 kg

DRUGS (2)
  1. METHADONE [Suspect]
     Indication: DRUG DEPENDENCE
     Route: 048
     Dates: start: 20130315, end: 20130813
  2. CLONAZEPAM [Suspect]
     Route: 048
     Dates: start: 20130811, end: 20130812

REACTIONS (3)
  - Sedation [None]
  - Agitation [None]
  - Medication error [None]
